FAERS Safety Report 6964816-X (Version None)
Quarter: 2010Q3

REPORT INFORMATION
  Report Type: 
  Country: None (occurrence: None)
  Receive Date: 20100901
  Receipt Date: 20100819
  Transmission Date: 20110219
  Serious: Yes (Hospitalization, Other)
  Sender: FDA-Public Use
  Company Number: 2010AC000494

PATIENT
  Age: 84 Year
  Sex: Female

DRUGS (18)
  1. DIGOXIN [Suspect]
     Dosage: 0.125 MG;QD;PO
     Route: 048
     Dates: start: 20070801
  2. TYLENOL PM [Concomitant]
  3. XANAX [Concomitant]
  4. AVAPRO [Concomitant]
  5. CARDIZEM [Concomitant]
  6. ASPIRIN [Concomitant]
  7. ATIVAN [Concomitant]
  8. PRILOSEC [Concomitant]
  9. CALCITRIOL [Concomitant]
  10. FLAGYL [Concomitant]
  11. MULTI-VITAMIN [Concomitant]
  12. AMBIENT [Concomitant]
  13. CALTRATE [Concomitant]
  14. LISINOPRIL [Concomitant]
  15. HYDROCHLOROTHIAZIDE [Concomitant]
  16. DILTIAZEM HCL [Concomitant]
  17. BENICAR [Concomitant]
  18. ATENOLOL [Concomitant]

REACTIONS (27)
  - ANXIETY [None]
  - AORTIC VALVE SCLEROSIS [None]
  - ATRIAL FIBRILLATION [None]
  - CARDIAC FLUTTER [None]
  - CHOLELITHIASIS [None]
  - COLON NEOPLASM [None]
  - COSTOCHONDRITIS [None]
  - CRYING [None]
  - DIVERTICULITIS [None]
  - DIZZINESS [None]
  - DYSPNOEA [None]
  - ELECTROCARDIOGRAM ST SEGMENT ABNORMAL [None]
  - EROSIVE OESOPHAGITIS [None]
  - FATIGUE [None]
  - HEPATIC CYST [None]
  - HYPOKALAEMIA [None]
  - HYPOMAGNESAEMIA [None]
  - HYPOPHAGIA [None]
  - INSOMNIA [None]
  - LEFT VENTRICULAR HYPERTROPHY [None]
  - MALAISE [None]
  - MITRAL VALVE SCLEROSIS [None]
  - MUSCULOSKELETAL CHEST PAIN [None]
  - NAUSEA [None]
  - PALPITATIONS [None]
  - SINUS BRADYCARDIA [None]
  - VOMITING [None]
